FAERS Safety Report 6831681-0 (Version None)
Quarter: 2010Q3

REPORT INFORMATION
  Report Type: 
  Country: None (occurrence: None)
  Receive Date: 20100712
  Receipt Date: 20100702
  Transmission Date: 20110219
  Serious: Yes (Hospitalization)
  Sender: FDA-Public Use
  Company Number: SE-ABBOTT-10P-150-0655217-00

PATIENT
  Age: 64 Year
  Sex: Male

DRUGS (4)
  1. ERGENYL TABLETS [Suspect]
     Indication: EPILEPSY
     Route: 048
     Dates: end: 20100301
  2. ERGENYL TABLETS [Suspect]
     Route: 048
     Dates: start: 20100301, end: 20100401
  3. FENANTOIN [Suspect]
     Indication: EPILEPSY
     Route: 048
     Dates: end: 20100401
  4. PRO-EPANUTIN [Suspect]
     Indication: STATUS EPILEPTICUS
     Dates: start: 20100301

REACTIONS (2)
  - HYPERAMMONAEMIA [None]
  - METABOLIC ENCEPHALOPATHY [None]
